FAERS Safety Report 16992941 (Version 1)
Quarter: 2019Q4

REPORT INFORMATION
  Report Type: Other
  Country: SE (occurrence: SE)
  Receive Date: 20191105
  Receipt Date: 20191105
  Transmission Date: 20200122
  Serious: Yes (Other)
  Sender: FDA-Public Use
  Company Number: SE-APOTEX-2019AP024349

PATIENT
  Age: 31 Year
  Sex: Male
  Weight: 85 kg

DRUGS (4)
  1. OLANZAPINE. [Suspect]
     Active Substance: OLANZAPINE
     Indication: SUICIDAL IDEATION
     Dosage: UNK, (2.5 MILLIGRAM)
     Route: 065
     Dates: start: 20190815
  2. MIRTAZAPINE. [Concomitant]
     Active Substance: MIRTAZAPINE
     Indication: PRODUCT USED FOR UNKNOWN INDICATION
     Dosage: UNK
     Route: 065
  3. OLANZAPINE. [Suspect]
     Active Substance: OLANZAPINE
     Indication: MOOD SWINGS
     Dosage: UNK
     Route: 065
  4. ESCITALOPRAM [Concomitant]
     Active Substance: ESCITALOPRAM OXALATE
     Indication: PRODUCT USED FOR UNKNOWN INDICATION
     Dosage: UNK, (15 MILLIGRAM)
     Route: 065

REACTIONS (2)
  - Agitation [Not Recovered/Not Resolved]
  - Violence-related symptom [Not Recovered/Not Resolved]

NARRATIVE: CASE EVENT DATE: 20190817
